FAERS Safety Report 4751309-3 (Version None)
Quarter: 2005Q3

REPORT INFORMATION
  Report Type: 
  Country: None (occurrence: None)
  Receive Date: 20050822
  Receipt Date: 20050815
  Transmission Date: 20060218
  Serious: Yes (Death)
  Sender: FDA-Public Use
  Company Number: USA-2005-0021031

PATIENT
  Age: 29 Year
  Sex: Female

DRUGS (1)
  1. MORPHINE SULFATE [Suspect]
     Indication: MIGRAINE
     Dosage: 30 MG, SEE TEXT, ORAL
     Route: 048

REACTIONS (8)
  - BRAIN OEDEMA [None]
  - EPSTEIN-BARR VIRUS INFECTION [None]
  - HYPOTONIA [None]
  - LYMPHADENOPATHY [None]
  - PHARYNGEAL STENOSIS [None]
  - RESPIRATORY DEPRESSION [None]
  - SPLENOMEGALY [None]
  - TONSILLAR HYPERTROPHY [None]
